FAERS Safety Report 19247703 (Version 1)
Quarter: 2021Q2

REPORT INFORMATION
  Report Type: Spontaneous
  Country: GB (occurrence: GB)
  Receive Date: 20210512
  Receipt Date: 20210512
  Transmission Date: 20210717
  Serious: Yes (Other)
  Sender: FDA-Public Use
  Company Number: GB-BAYER-2021-137359

PATIENT
  Age: 30 Year
  Sex: Female
  Weight: 91.62 kg

DRUGS (2)
  1. SERTRALINE [Concomitant]
     Active Substance: SERTRALINE HYDROCHLORIDE
     Indication: ILL-DEFINED DISORDER
  2. MIRENA [Suspect]
     Active Substance: LEVONORGESTREL
     Indication: ILL-DEFINED DISORDER
     Dosage: 20 ?G PER DAY CONTINUOUSLY
     Route: 015
     Dates: start: 20210430

REACTIONS (3)
  - Night sweats [Not Recovered/Not Resolved]
  - Off label use [None]
  - Complication of device insertion [None]

NARRATIVE: CASE EVENT DATE: 20210430
